FAERS Safety Report 7949625-7 (Version None)
Quarter: 2011Q4

REPORT INFORMATION
  Report Type: 
  Country: None (occurrence: None)
  Receive Date: 20111130
  Receipt Date: 20111121
  Transmission Date: 20120403
  Serious: Yes (Other)
  Sender: FDA-Public Use
  Company Number: AU-ASTRAZENECA-2011SE56120

PATIENT
  Sex: Female

DRUGS (10)
  1. SEROQUEL XR [Suspect]
     Route: 048
     Dates: start: 20110801
  2. SEROQUEL XR [Suspect]
     Indication: ANXIETY DISORDER
     Route: 048
  3. SEROQUEL XR [Suspect]
     Route: 048
     Dates: start: 20110801
  4. SEROQUEL XR [Suspect]
     Route: 048
     Dates: start: 20110919
  5. SEROQUEL XR [Suspect]
     Indication: GENERALISED ANXIETY DISORDER
     Route: 048
  6. SEROQUEL XR [Suspect]
     Route: 048
     Dates: start: 20110801, end: 20110916
  7. SEROQUEL XR [Suspect]
     Route: 048
     Dates: start: 20110801, end: 20110916
  8. SEROQUEL XR [Suspect]
     Route: 048
     Dates: start: 20110819
  9. SEROQUEL XR [Suspect]
     Route: 048
     Dates: start: 20110819
  10. SEROQUEL XR [Suspect]
     Route: 048
     Dates: start: 20110919

REACTIONS (2)
  - DRUG WITHDRAWAL SYNDROME [None]
  - OFF LABEL USE [None]
